FAERS Safety Report 10217231 (Version 4)
Quarter: 2014Q3

REPORT INFORMATION
  Report Type: Spontaneous
  Country: JP (occurrence: JP)
  Receive Date: 20140604
  Receipt Date: 20140709
  Transmission Date: 20150326
  Serious: Yes (Other)
  Sender: FDA-Public Use
  Company Number: JP-BRISTOL-MYERS SQUIBB COMPANY-20688909

PATIENT
  Age: 63 Year
  Sex: Male
  Weight: 64.7 kg

DRUGS (1)
  1. ELIQUIS [Suspect]
     Active Substance: APIXABAN
     Indication: ATRIAL FIBRILLATION
     Dosage: 5MG,?2.5MG?5 MG, 2X/DAY
     Route: 048
     Dates: start: 20140329, end: 20140420

REACTIONS (2)
  - Rectal cancer [Unknown]
  - Lower gastrointestinal haemorrhage [Recovered/Resolved]

NARRATIVE: CASE EVENT DATE: 20140420
